FAERS Safety Report 18817132 (Version 2)
Quarter: 2021Q1

REPORT INFORMATION
  Report Type: Report from Study
  Country: US (occurrence: US)
  Receive Date: 20210201
  Receipt Date: 20210301
  Transmission Date: 20210419
  Serious: Yes (Hospitalization)
  Sender: FDA-Public Use
  Company Number: US-EXELIXIS-CABO-20036057

PATIENT
  Age: 51 Year
  Sex: Male
  Weight: 69.39 kg

DRUGS (4)
  1. TESSALON [Concomitant]
     Active Substance: BENZONATATE
  2. VITAMIN D [Concomitant]
     Active Substance: VITAMIN D NOS
  3. CABOMETYX [Suspect]
     Active Substance: CABOZANTINIB S-MALATE
     Indication: RENAL CANCER
     Dosage: 60 MG, QD
     Route: 048
     Dates: start: 20201201, end: 20201221
  4. CABOMETYX [Suspect]
     Active Substance: CABOZANTINIB S-MALATE
     Dosage: 20 MG, QD
     Route: 048
     Dates: start: 20210126

REACTIONS (10)
  - Urticaria [Unknown]
  - Cough [Unknown]
  - Burning sensation [Unknown]
  - Skin ulcer [Unknown]
  - Rash [Unknown]
  - Nasal mucosal blistering [Unknown]
  - Palmar-plantar erythrodysaesthesia syndrome [Unknown]
  - Lip blister [Unknown]
  - Stomatitis [Not Recovered/Not Resolved]
  - Product dose omission issue [Unknown]

NARRATIVE: CASE EVENT DATE: 20201208
